FAERS Safety Report 8300367-8 (Version None)
Quarter: 2012Q2

REPORT INFORMATION
  Report Type: 
  Country: None (occurrence: None)
  Receive Date: 20120417
  Receipt Date: 20120406
  Transmission Date: 20120825
  Serious: Yes (Hospitalization, Other)
  Sender: FDA-Public Use
  Company Number: ADR-2012-00333

PATIENT
  Age: 45 Year
  Sex: Female

DRUGS (2)
  1. LIORESAL [Suspect]
     Indication: CEREBRAL PALSY
     Dosage: 54.99. MCG/DAY
  2. LIORESAL [Suspect]
     Indication: MUSCLE SPASTICITY
     Dosage: 54.99. MCG/DAY

REACTIONS (3)
  - INJECTION SITE PAIN [None]
  - INTRACRANIAL HYPOTENSION [None]
  - IMPLANT SITE EFFUSION [None]
